FAERS Safety Report 20744374 (Version 1)
Quarter: 2022Q2

REPORT INFORMATION
  Report Type: Spontaneous
  Country: MY (occurrence: None)
  Receive Date: 20220425
  Receipt Date: 20220425
  Transmission Date: 20220721
  Serious: Yes (Life-Threatening, Other)
  Sender: FDA-Public Use
  Company Number: MY-MICRO LABS LIMITED-ML2022-01590

PATIENT
  Age: 58 Year
  Sex: Male

DRUGS (7)
  1. ATORVASTATIN [Suspect]
     Active Substance: ATORVASTATIN
  2. SACUBITRIL\VALSARTAN [Suspect]
     Active Substance: SACUBITRIL\VALSARTAN
     Dosage: 49MG/51MG TWICE DAILY
  3. ASPIRIN [Concomitant]
     Active Substance: ASPIRIN
  4. PERINDOPRIL [Concomitant]
     Active Substance: PERINDOPRIL
  5. BISOPROLOL [Concomitant]
     Active Substance: BISOPROLOL
  6. FUROSEMIDE [Concomitant]
     Active Substance: FUROSEMIDE
  7. SPIRONOLACTONE [Concomitant]
     Active Substance: SPIRONOLACTONE

REACTIONS (4)
  - Condition aggravated [Recovered/Resolved]
  - Acute kidney injury [Recovered/Resolved]
  - Rhabdomyolysis [Recovered/Resolved]
  - Drug interaction [Unknown]
